FAERS Safety Report 10082337 (Version 1)
Quarter: 2014Q2

REPORT INFORMATION
  Report Type: Spontaneous
  Country: GB (occurrence: GB)
  Receive Date: 20140416
  Receipt Date: 20140416
  Transmission Date: 20141212
  Serious: Yes (Hospitalization, Disabling, Other)
  Sender: FDA-Public Use
  Company Number: GB-TEVA-473924ISR

PATIENT
  Age: 52 Year
  Sex: Female
  Weight: 82.55 kg

DRUGS (3)
  1. ANASTROZOLE [Suspect]
     Indication: BREAST CANCER
     Dosage: BREAST CANCER HORMONE THERAPY.
     Route: 048
     Dates: start: 20130825
  2. ANASTROZOLE [Suspect]
     Indication: HORMONE THERAPY
  3. THYROXINE [Concomitant]
     Dosage: TAKEN FOR APPROXIMATELY 5 YEARS.

REACTIONS (2)
  - Atrioventricular block [Not Recovered/Not Resolved]
  - Heart rate irregular [Unknown]
